FAERS Safety Report 9129861 (Version 2)
Quarter: 2013Q1

REPORT INFORMATION
  Report Type: Spontaneous
  Country: US (occurrence: US)
  Receive Date: 20130228
  Receipt Date: 20130314
  Transmission Date: 20140127
  Serious: Yes (Hospitalization, Other)
  Sender: FDA-Public Use
  Company Number: US-BAYER-2013-025419

PATIENT
  Sex: Female

DRUGS (1)
  1. MIRENA [Suspect]
     Dosage: 20 MCG/24HR, CONT
     Route: 015
     Dates: start: 20130130, end: 20130220

REACTIONS (5)
  - Pelvic inflammatory disease [None]
  - Pelvic infection [None]
  - Genital haemorrhage [None]
  - Pain [None]
  - Tubo-ovarian abscess [None]
